FAERS Safety Report 25232658 (Version 4)
Quarter: 2025Q4

REPORT INFORMATION
  Report Type: Spontaneous
  Country: US (occurrence: US)
  Receive Date: 20250424
  Receipt Date: 20251010
  Transmission Date: 20260118
  Serious: Yes (Hospitalization, Other)
  Sender: CIPLA
  Company Number: US-CIPLA (EU) LIMITED-2025US04808

PATIENT

DRUGS (7)
  1. CARBOPLATIN [Suspect]
     Active Substance: CARBOPLATIN
     Indication: Follicular lymphoma stage IV
     Dosage: UNK, ICE REGIMEN
     Route: 065
  2. LENALIDOMIDE [Suspect]
     Active Substance: LENALIDOMIDE
     Indication: Follicular lymphoma stage IV
     Dosage: UNK
     Route: 065
  3. RITUXIMAB [Suspect]
     Active Substance: RITUXIMAB
     Indication: Follicular lymphoma stage IV
     Dosage: UNK
     Route: 065
  4. IFOSFAMIDE [Suspect]
     Active Substance: IFOSFAMIDE
     Indication: Follicular lymphoma stage IV
     Dosage: UNK, ICE REGIMEN
     Route: 065
  5. ETOPOSIDE [Suspect]
     Active Substance: ETOPOSIDE
     Indication: Follicular lymphoma stage IV
     Dosage: UNK, ICE REGIMEN, 1 ETOPOSIDE
     Route: 065
  6. CYTOXAN [Concomitant]
     Active Substance: CYCLOPHOSPHAMIDE
     Indication: Follicular lymphoma
     Dosage: UNK
     Route: 065
  7. PREDNISONE [Concomitant]
     Active Substance: PREDNISONE
     Indication: Cytopenia
     Dosage: UNK
     Route: 065

REACTIONS (4)
  - Gastritis haemorrhagic [Recovered/Resolved]
  - Mucosal haemorrhage [Recovering/Resolving]
  - Gastric ulcer [Recovering/Resolving]
  - Acute respiratory failure [Unknown]
